FAERS Safety Report 10428918 (Version 1)
Quarter: 2014Q3

REPORT INFORMATION
  Report Type: Spontaneous
  Country: ES (occurrence: ES)
  Receive Date: 20140904
  Receipt Date: 20140904
  Transmission Date: 20150326
  Serious: Yes (Hospitalization)
  Sender: FDA-Public Use
  Company Number: ES-CIPLA LTD.-2014ES01221

PATIENT
  Age: 53 Year
  Sex: Male

DRUGS (4)
  1. CAPECITABINE [Suspect]
     Active Substance: CAPECITABINE
     Indication: METASTATIC RENAL CELL CARCINOMA
     Dosage: 650 MG/M2 (DOSE LEVEL 0), BID, PER 12 HOURS, ON DAYS 1-14
     Route: 048
  2. SUNITINIB [Suspect]
     Active Substance: SUNITINIB
     Indication: METASTATIC RENAL CELL CARCINOMA
     Dosage: 37.5 MG, DAILY, FOR SIX 21-DAY CYCLES
     Route: 048
  3. GEMCITABINE [Suspect]
     Active Substance: GEMCITABINE\GEMCITABINE HYDROCHLORIDE
     Indication: METASTATIC RENAL CELL CARCINOMA
     Dosage: 1000 MG/M2, PER DAY, ON DAYS 1 AND 8
     Route: 042
  4. CAPECITABINE [Suspect]
     Active Substance: CAPECITABINE
     Dosage: 850 MG/M2 (DOSE LEVEL 1), BID, PER 12 HOURS, ON DAYS 1-14
     Route: 048

REACTIONS (2)
  - Epilepsy [Unknown]
  - Disease progression [Unknown]
